FAERS Safety Report 7590972-9 (Version None)
Quarter: 2011Q3

REPORT INFORMATION
  Report Type: 
  Country: None (occurrence: None)
  Receive Date: 20110705
  Receipt Date: 20110629
  Transmission Date: 20111222
  Serious: Yes (Death)
  Sender: FDA-Public Use
  Company Number: PHHY2011US59202

PATIENT
  Sex: Male

DRUGS (3)
  1. EXJADE [Suspect]
     Dosage: 2000 MG, DAILY
     Route: 048
  2. VIDAZA [Concomitant]
     Dosage: 100 MG, UNK
  3. ARANESP [Concomitant]
     Dosage: 40 UG, UNK

REACTIONS (1)
  - DEATH [None]
